FAERS Safety Report 12632165 (Version 2)
Quarter: 2016Q3

REPORT INFORMATION
  Report Type: Spontaneous
  Country: US (occurrence: US)
  Receive Date: 20160808
  Receipt Date: 20160808
  Transmission Date: 20161109
  Serious: No
  Sender: FDA-Public Use
  Company Number: US-BEH-2016062063

PATIENT
  Sex: Male
  Weight: 99 kg

DRUGS (16)
  1. LEXAPRO [Concomitant]
     Active Substance: ESCITALOPRAM OXALATE
  2. HIZENTRA [Suspect]
     Active Substance: HUMAN IMMUNOGLOBULIN G
     Indication: IMMUNODEFICIENCY COMMON VARIABLE
     Route: 058
     Dates: start: 20130131
  3. TESTOSTERONE. [Concomitant]
     Active Substance: TESTOSTERONE
  4. ALLEGRA [Concomitant]
     Active Substance: FEXOFENADINE HYDROCHLORIDE
  5. HYQVIA [Concomitant]
     Active Substance: HUMAN IMMUNOGLOBULIN G\HYALURONIDASE RECOMBINANT HUMAN
  6. NORMAL SALINE [Concomitant]
     Active Substance: SODIUM CHLORIDE
  7. EPIPEN [Concomitant]
     Active Substance: EPINEPHRINE
  8. ACETAMINOPHEN. [Concomitant]
     Active Substance: ACETAMINOPHEN
  9. CLONAZEPAM. [Concomitant]
     Active Substance: CLONAZEPAM
  10. SIMVASTATIN. [Concomitant]
     Active Substance: SIMVASTATIN
  11. FLONASE [Concomitant]
     Active Substance: FLUTICASONE PROPIONATE
  12. XOPENEX [Concomitant]
     Active Substance: LEVALBUTEROL HYDROCHLORIDE
  13. KLONOPIN [Concomitant]
     Active Substance: CLONAZEPAM
  14. MULTIVITAMIN [Concomitant]
     Active Substance: VITAMINS
  15. DICLOFENAC [Concomitant]
     Active Substance: DICLOFENAC
  16. MUCINEX [Concomitant]
     Active Substance: GUAIFENESIN

REACTIONS (1)
  - Sinusitis [Unknown]
